FAERS Safety Report 19678958 (Version 3)
Quarter: 2022Q1

REPORT INFORMATION
  Report Type: Report from Study
  Country: CA (occurrence: CA)
  Receive Date: 20210809
  Receipt Date: 20220218
  Transmission Date: 20220423
  Serious: Yes (Other)
  Sender: FDA-Public Use
  Company Number: CA-CELGENE-CAN-20210707469

PATIENT
  Age: 65 Year
  Sex: Female
  Weight: 73 kg

DRUGS (5)
  1. ONUREG [Suspect]
     Active Substance: AZACITIDINE
     Indication: Acute myeloid leukaemia
     Dosage: 300 MILLIGRAM, AT NIGHT
     Route: 048
  2. ONUREG [Suspect]
     Active Substance: AZACITIDINE
     Dosage: 300 MILLIGRAM
     Route: 048
     Dates: start: 202107
  3. ONUREG [Suspect]
     Active Substance: AZACITIDINE
     Dosage: 300 MILLIGRAM
     Route: 048
     Dates: start: 202107, end: 20210727
  4. ONUREG [Suspect]
     Active Substance: AZACITIDINE
     Dosage: 300 MILLIGRAM
     Route: 048
     Dates: start: 20211207
  5. AMLODIPINE [Concomitant]
     Active Substance: AMLODIPINE BESYLATE
     Indication: Hypertension
     Dosage: 5 MILLIGRAM
     Route: 065
     Dates: start: 202107

REACTIONS (6)
  - Haematemesis [Unknown]
  - Feeling abnormal [Unknown]
  - Blood pressure decreased [Unknown]
  - Heart rate increased [Unknown]
  - Nausea [Unknown]
  - Rash [Unknown]

NARRATIVE: CASE EVENT DATE: 20210701
